FAERS Safety Report 9139014 (Version 1)
Quarter: 2013Q1

REPORT INFORMATION
  Report Type: Spontaneous
  Country: US (occurrence: US)
  Receive Date: 20130305
  Receipt Date: 20130305
  Transmission Date: 20140127
  Serious: Yes (Hospitalization)
  Sender: FDA-Public Use
  Company Number: US-SANOFI-AVENTIS-2013SA019796

PATIENT
  Age: 50 Year
  Sex: Male

DRUGS (4)
  1. CLOPIDOGREL BISULFATE [Suspect]
     Indication: ACUTE CORONARY SYNDROME
  2. ASPIRIN [Concomitant]
  3. LISINOPRIL [Concomitant]
  4. ATORVASTATIN [Concomitant]

REACTIONS (6)
  - Coronary artery restenosis [Unknown]
  - Chest pain [Unknown]
  - Chest pain [Unknown]
  - Dyspepsia [Unknown]
  - Nausea [Unknown]
  - No therapeutic response [Unknown]
